FAERS Safety Report 5055645-5 (Version None)
Quarter: 2006Q3

REPORT INFORMATION
  Report Type: 
  Country: None (occurrence: None)
  Receive Date: 20060714
  Receipt Date: 20060626
  Transmission Date: 20061208
  Serious: Yes (Hospitalization, Other)
  Sender: FDA-Public Use
  Company Number: US200606004167

PATIENT
  Age: 67 Year
  Sex: Female

DRUGS (4)
  1. HUMALOG [Suspect]
     Indication: DIABETES MELLITUS
     Dates: end: 20050101
  2. HUMULIN N [Suspect]
     Indication: DIABETES MELLITUS
     Dosage: 110 U, 2/D
  3. LANTUS [Concomitant]
  4. NOVOLOG [Concomitant]

REACTIONS (12)
  - AORTIC STENOSIS [None]
  - BLOOD GLUCOSE INCREASED [None]
  - CHEST DISCOMFORT [None]
  - DRUG INEFFECTIVE [None]
  - DYSPNOEA [None]
  - FEAR [None]
  - LOSS OF CONSCIOUSNESS [None]
  - OXYGEN SUPPLEMENTATION [None]
  - RESPIRATORY ARREST [None]
  - SINGLE VESSEL BYPASS GRAFT [None]
  - SYNCOPE [None]
  - TREMOR [None]
